FAERS Safety Report 6968945-6 (Version None)
Quarter: 2010Q3

REPORT INFORMATION
  Report Type: 
  Country: None (occurrence: None)
  Receive Date: 20100903
  Receipt Date: 20100903
  Transmission Date: 20110219
  Serious: No
  Sender: FDA-Public Use
  Company Number: None

PATIENT
  Age: 59 Year
  Sex: Male
  Weight: 85 kg

DRUGS (1)
  1. SIMVASTATIN [Suspect]
     Indication: HYPERLIPIDAEMIA
     Dosage: 80 MG EVERY DAY PO
     Route: 048
     Dates: start: 20080731, end: 20100205

REACTIONS (8)
  - ANGIOEDEMA [None]
  - EMOTIONAL DISTRESS [None]
  - ERYTHEMA [None]
  - HYPERLIPIDAEMIA [None]
  - PENILE VASCULAR DISORDER [None]
  - PENIS DISORDER [None]
  - RASH [None]
  - VASCULITIS [None]
